FAERS Safety Report 4704344-5 (Version None)
Quarter: 2005Q2

REPORT INFORMATION
  Report Type: 
  Country: None (occurrence: None)
  Receive Date: 20050630
  Receipt Date: 20050622
  Transmission Date: 20051028
  Serious: Yes (Other)
  Sender: FDA-Public Use
  Company Number: US-JNJFOC-20050606280

PATIENT
  Sex: Female

DRUGS (16)
  1. INFLIXIMAB [Suspect]
     Indication: RHEUMATOID ARTHRITIS
     Dosage: 800MG AT LAST DOSE
     Route: 042
  2. HUMIRA [Concomitant]
  3. SYNTHROID [Concomitant]
  4. PREDNISONE [Concomitant]
  5. LISINOPRIL [Concomitant]
  6. CLIMARA [Concomitant]
  7. VIOXX [Concomitant]
  8. MULTI-VITAMIN [Concomitant]
  9. MULTI-VITAMIN [Concomitant]
  10. MULTI-VITAMIN [Concomitant]
  11. MULTI-VITAMIN [Concomitant]
  12. MULTI-VITAMIN [Concomitant]
  13. MULTI-VITAMIN [Concomitant]
  14. MULTI-VITAMIN [Concomitant]
  15. MULTI-VITAMIN [Concomitant]
  16. TYLENOL [Concomitant]
     Dosage: 3000 TO 4000 MG DAILY

REACTIONS (1)
  - SYSTEMIC LUPUS ERYTHEMATOSUS [None]
